FAERS Safety Report 4882708-7 (Version None)
Quarter: 2005Q4

REPORT INFORMATION
  Report Type: 
  Country: None (occurrence: None)
  Receive Date: 20051201
  Receipt Date: 20050915
  Transmission Date: 20060501
  Serious: No
  Sender: FDA-Public Use
  Company Number: 2005PV002217

PATIENT
  Age: 62 Year
  Sex: Female
  Weight: 90.7194 kg

DRUGS (13)
  1. BYETTA [Suspect]
     Indication: DIABETES MELLITUS NON-INSULIN-DEPENDENT
     Dosage: SEE IMAGE
     Route: 058
     Dates: start: 20050813, end: 20050911
  2. BYETTA [Suspect]
     Indication: DIABETES MELLITUS NON-INSULIN-DEPENDENT
     Dosage: SEE IMAGE
     Route: 058
     Dates: start: 20050701
  3. BYETTA [Suspect]
     Indication: DIABETES MELLITUS NON-INSULIN-DEPENDENT
     Dosage: SEE IMAGE
     Route: 058
     Dates: start: 20050912
  4. ACTOS [Concomitant]
  5. SYNTHROID [Concomitant]
  6. VERAPAMIL [Concomitant]
  7. METFORMIN HCL [Concomitant]
  8. REQUIP [Concomitant]
  9. HYDROCHLOROTHIAZIDE [Concomitant]
  10. LIPITOR [Concomitant]
  11. GLYBURIDE [Concomitant]
  12. ASPIRIN [Concomitant]
  13. MULTIVITAMIN [Concomitant]

REACTIONS (4)
  - INJECTION SITE ERYTHEMA [None]
  - INJECTION SITE PRURITUS [None]
  - INJECTION SITE RASH [None]
  - WEIGHT DECREASED [None]
